FAERS Safety Report 7980875-X (Version None)
Quarter: 2011Q4

REPORT INFORMATION
  Report Type: 
  Country: None (occurrence: None)
  Receive Date: 20111214
  Receipt Date: 20111201
  Transmission Date: 20120403
  Serious: Yes (Other)
  Sender: FDA-Public Use
  Company Number: JP-MYLANLABS-2011S1024709

PATIENT
  Age: 65 Year
  Sex: Male

DRUGS (5)
  1. RUPOCK [Concomitant]
     Indication: PRODUCT USED FOR UNKNOWN INDICATION
     Route: 047
     Dates: start: 20110817, end: 20111102
  2. SANPILO [Concomitant]
     Indication: PRODUCT USED FOR UNKNOWN INDICATION
     Route: 047
     Dates: start: 20111102
  3. XALATAN [Concomitant]
     Indication: GLAUCOMA
  4. LATANOPROST [Suspect]
     Indication: GLAUCOMA
     Route: 047
     Dates: start: 20110817, end: 20111102
  5. FLUOROMETHOLONE [Concomitant]
     Indication: PRODUCT USED FOR UNKNOWN INDICATION
     Route: 047
     Dates: start: 20111102

REACTIONS (2)
  - VISUAL ACUITY REDUCED [None]
  - GLAUCOMA [None]
